FAERS Safety Report 13268297 (Version 1)
Quarter: 2017Q1

REPORT INFORMATION
  Report Type: Spontaneous
  Country: BR (occurrence: BR)
  Receive Date: 20170224
  Receipt Date: 20170224
  Transmission Date: 20170428
  Serious: Yes (Death, Hospitalization, Other)
  Sender: FDA-Public Use
  Company Number: BR-PFIZER INC-2017078219

PATIENT
  Age: 90 Year
  Sex: Female

DRUGS (1)
  1. XALATAN [Suspect]
     Active Substance: LATANOPROST
     Indication: GLAUCOMA
     Dosage: 1 DROP IN EACH EYE AT NIGHT
     Route: 047
     Dates: start: 2010, end: 201701

REACTIONS (9)
  - Fall [Unknown]
  - Femur fracture [Unknown]
  - Underweight [Unknown]
  - Asthenia [Unknown]
  - Shock [Fatal]
  - Cardiac arrest [Unknown]
  - Conjunctivitis [Unknown]
  - Pulmonary embolism [Fatal]
  - Acute respiratory failure [Fatal]

NARRATIVE: CASE EVENT DATE: 2016
